FAERS Safety Report 8401296-1 (Version None)
Quarter: 2012Q2

REPORT INFORMATION
  Report Type: 
  Country: None (occurrence: None)
  Receive Date: 20120530
  Receipt Date: 20120530
  Transmission Date: 20120825
  Serious: Yes (Life-Threatening, Hospitalization)
  Sender: FDA-Public Use
  Company Number: None

PATIENT
  Age: 81 Year
  Sex: Male
  Weight: 69.8539 kg

DRUGS (1)
  1. AVELOX [Suspect]
     Indication: PNEUMONIA
     Dosage: 400 MG DAILY ORAL BY I.V. IN HOSPITAL
     Route: 048
     Dates: start: 20120424, end: 20120503

REACTIONS (13)
  - OROPHARYNGEAL PAIN [None]
  - ANXIETY [None]
  - DYSPNOEA [None]
  - MOOD ALTERED [None]
  - AGGRESSION [None]
  - ASTHENIA [None]
  - INSOMNIA [None]
  - ORAL CANDIDIASIS [None]
  - MENTAL IMPAIRMENT [None]
  - HEPATIC FAILURE [None]
  - CLOSTRIDIUM DIFFICILE COLITIS [None]
  - RENAL FAILURE [None]
  - PYREXIA [None]
